FAERS Safety Report 23471011 (Version 2)
Quarter: 2024Q1

REPORT INFORMATION
  Report Type: Report from Study
  Country: US (occurrence: US)
  Receive Date: 20240202
  Receipt Date: 20240213
  Transmission Date: 20240410
  Serious: No
  Sender: FDA-Public Use
  Company Number: US-BIOVITRUM-2024-US-000122

PATIENT
  Age: 75 Year
  Sex: Female

DRUGS (1)
  1. KINERET [Suspect]
     Active Substance: ANAKINRA
     Indication: Rheumatoid arthritis
     Dosage: 100 MG, DAILY
     Route: 058
     Dates: start: 20231214

REACTIONS (7)
  - Urticaria [Recovered/Resolved]
  - Arthralgia [Unknown]
  - Constipation [Unknown]
  - Injection site erythema [Unknown]
  - Hypersensitivity [Unknown]
  - Pruritus [Recovered/Resolved]
  - Rash [Unknown]
